FAERS Safety Report 7497637-2 (Version None)
Quarter: 2011Q2

REPORT INFORMATION
  Report Type: 
  Country: None (occurrence: None)
  Receive Date: 20110523
  Receipt Date: 20110520
  Transmission Date: 20111010
  Serious: Yes (Hospitalization)
  Sender: FDA-Public Use
  Company Number: BE-UCBSA-029750

PATIENT
  Sex: Female

DRUGS (6)
  1. SIPRALEXA [Concomitant]
     Indication: DEPRESSION
     Dosage: DOSE PER INTAKE:10. TOTAL DAILY DOSE:10
     Route: 048
     Dates: start: 20100901
  2. VIMPAT [Suspect]
     Dates: start: 20110201
  3. VIMPAT [Suspect]
     Indication: EPILEPSY
     Dosage: DOSE PER INTAKE:200. TOTAL DAILY DOSE:400
     Route: 048
     Dates: start: 20101025
  4. VIMPAT [Suspect]
  5. TEGRETOL-XR [Concomitant]
     Indication: EPILEPSY
     Dosage: DOSE PER INTAKE:500. TOTAL DAILY DOSE:1000
     Route: 048
     Dates: start: 20060601
  6. VIMPAT [Suspect]
     Dosage: DOSE REDUCED
     Dates: start: 20110301

REACTIONS (1)
  - STATUS EPILEPTICUS [None]
